FAERS Safety Report 8488298-4 (Version None)
Quarter: 2012Q3

REPORT INFORMATION
  Report Type: 
  Country: None (occurrence: None)
  Receive Date: 20120705
  Receipt Date: 20120626
  Transmission Date: 20120928
  Serious: Yes (Death)
  Sender: FDA-Public Use
  Company Number: US-INCYTE CORPORATION-2012IN001139

PATIENT
  Sex: Male

DRUGS (10)
  1. JAKAFI [Suspect]
     Dosage: 20 MG, BID
     Route: 048
  2. COREG [Concomitant]
     Dosage: UNK MG, UNK
  3. DEFEROXAMINE MESYLATE [Concomitant]
  4. ALLOPURINOL [Concomitant]
  5. ASPIRIN [Concomitant]
     Dosage: UNK MG, UNK
  6. MULTI-VITAMIN [Concomitant]
  7. LIPITOR [Concomitant]
  8. LISINOPRIL [Concomitant]
  9. HYDROXYUREA [Concomitant]
  10. WARFARIN SODIUM [Concomitant]

REACTIONS (1)
  - DEATH [None]
